FAERS Safety Report 7320888-4 (Version None)
Quarter: 2011Q1

REPORT INFORMATION
  Report Type: 
  Country: None (occurrence: None)
  Receive Date: 20110223
  Receipt Date: 20110223
  Transmission Date: 20110831
  Serious: Yes (Hospitalization)
  Sender: FDA-Public Use
  Company Number: None

PATIENT
  Sex: Male
  Weight: 66.2252 kg

DRUGS (12)
  1. ERLOTINIB 150MG [Suspect]
     Indication: NON-SMALL CELL LUNG CANCER
     Dosage: 150 MG QD PO
     Route: 048
     Dates: start: 20100427, end: 20110220
  2. HYDROXYCHLOROQUENE [Concomitant]
  3. ISONIAZID [Concomitant]
  4. MELOXICAM [Concomitant]
  5. PROTONIX [Concomitant]
  6. INODMETHACINE [Concomitant]
  7. TEMAZEPAM [Concomitant]
  8. RIFAMPIN [Concomitant]
  9. AMLODIPINE [Concomitant]
  10. PYRAZINAMIDE [Concomitant]
  11. ASA [Concomitant]
  12. PREDNISONE [Concomitant]

REACTIONS (1)
  - PNEUMONIA [None]
